FAERS Safety Report 9124438 (Version 1)
Quarter: 2013Q1

REPORT INFORMATION
  Report Type: Spontaneous
  Country: MX (occurrence: MX)
  Receive Date: 20130227
  Receipt Date: 20130227
  Transmission Date: 20140127
  Serious: Yes (Other)
  Sender: FDA-Public Use
  Company Number: PHHY2013MX017741

PATIENT
  Age: 63 Year
  Sex: Female

DRUGS (3)
  1. EXELON PATCH [Suspect]
     Dosage: 4.6 MG, DAILY
     Route: 062
     Dates: start: 20130220, end: 20130220
  2. OMEPRAZOLE [Suspect]
     Indication: GASTRITIS
     Dosage: 1 DF, UNK
  3. PREGABALIN [Suspect]
     Indication: SLEEP DISORDER
     Dosage: 1 DF, UNK
     Dates: start: 20130220

REACTIONS (2)
  - Syncope [Recovered/Resolved]
  - Nausea [Recovered/Resolved]
